FAERS Safety Report 9432973 (Version 1)
Quarter: 2013Q3

REPORT INFORMATION
  Report Type: Spontaneous
  Country: GB (occurrence: GB)
  Receive Date: 20130731
  Receipt Date: 20130731
  Transmission Date: 20140515
  Serious: Yes (Disabling)
  Sender: FDA-Public Use
  Company Number: PHHY2013GB078761

PATIENT
  Age: 18 Month
  Sex: Male

DRUGS (5)
  1. LORAZEPAM [Suspect]
     Indication: INFANTILE SPASMS
     Dosage: 500 UG/ML, UNK
     Route: 048
     Dates: start: 20130516, end: 20130517
  2. TOPIRAMATE [Concomitant]
  3. LACOSAMIDE [Concomitant]
  4. BACLOFEN [Concomitant]
  5. PARACETAMOL [Concomitant]

REACTIONS (4)
  - Skin discolouration [Recovered/Resolved]
  - Muscle spasms [Recovered/Resolved]
  - Convulsion [Recovered/Resolved]
  - Dyspnoea [Recovered/Resolved]
